FAERS Safety Report 8307318-0 (Version None)
Quarter: 2012Q2

REPORT INFORMATION
  Report Type: 
  Country: None (occurrence: None)
  Receive Date: 20120420
  Receipt Date: 20120417
  Transmission Date: 20120825
  Serious: Yes (Other)
  Sender: FDA-Public Use
  Company Number: 2012S1000361

PATIENT
  Age: 45 Year
  Sex: Female

DRUGS (4)
  1. LAMICTAL [Concomitant]
  2. ESCITALOPRAM [Concomitant]
  3. LIVAZO (PITAVASTATIN) [Suspect]
     Indication: HYPERCHOLESTEROLAEMIA
     Dosage: 2 MG;1X;PO
     Route: 048
     Dates: start: 20120210, end: 20120307
  4. ALPRAZOLAM [Concomitant]

REACTIONS (1)
  - LOSS OF LIBIDO [None]
